FAERS Safety Report 14247494 (Version 2)
Quarter: 2017Q4

REPORT INFORMATION
  Report Type: Spontaneous
  Country: JP (occurrence: JP)
  Receive Date: 20171204
  Receipt Date: 20171207
  Transmission Date: 20180321
  Serious: No
  Sender: FDA-Public Use
  Company Number: JP-ASTRAZENECA-2017SF21162

PATIENT
  Age: 64 Year
  Sex: Female

DRUGS (10)
  1. INSULIN LISPRO (GENETICAL RECOMBINATION) [Concomitant]
     Indication: DIABETES MELLITUS
     Dosage: GIVEN-DOSE: 3-5-5
     Route: 065
  2. INSULIN LISPRO (GENETICAL RECOMBINATION) [Concomitant]
     Indication: DIABETES MELLITUS
     Dosage: GIVEN-DOSE: 7-5-9
     Route: 065
  3. INSULIN LISPRO (GENETICAL RECOMBINATION) [Concomitant]
     Indication: DIABETES MELLITUS
     Dosage: GIVEN-DOSE: 5-5-7
     Route: 065
  4. INSULIN LISPRO (GENETICAL RECOMBINATION) [Concomitant]
     Indication: DIABETES MELLITUS
     Route: 065
  5. INSULIN GLARGINE (GENETICAL RECOMBINATION) [Concomitant]
     Active Substance: INSULIN GLARGINE
     Indication: DIABETES MELLITUS
     Route: 065
  6. INSULIN LISPRO (GENETICAL RECOMBINATION) [Concomitant]
     Indication: DIABETES MELLITUS
     Route: 065
  7. INSULIN GLARGINE (GENETICAL RECOMBINATION) [Concomitant]
     Active Substance: INSULIN GLARGINE
     Indication: DIABETES MELLITUS
     Route: 065
  8. FORXIGA [Suspect]
     Active Substance: DAPAGLIFLOZIN
     Indication: TYPE 2 DIABETES MELLITUS
     Route: 048
  9. INSULIN GLARGINE (GENETICAL RECOMBINATION) [Concomitant]
     Active Substance: INSULIN GLARGINE
     Indication: DIABETES MELLITUS
     Route: 065
  10. INSULIN GLARGINE (GENETICAL RECOMBINATION) [Concomitant]
     Active Substance: INSULIN GLARGINE
     Indication: DIABETES MELLITUS
     Route: 065

REACTIONS (2)
  - Blood ketone body increased [Unknown]
  - Urine ketone body present [Unknown]
